FAERS Safety Report 6327695-X (Version None)
Quarter: 2009Q3

REPORT INFORMATION
  Report Type: 
  Country: None (occurrence: None)
  Receive Date: 20090825
  Receipt Date: 20090820
  Transmission Date: 20100115
  Serious: Yes (Hospitalization)
  Sender: FDA-Public Use
  Company Number: PHHO2009CA10300

PATIENT
  Sex: Male
  Weight: 101 kg

DRUGS (1)
  1. RAD 666 RAD+TAB [Suspect]
     Indication: METASTATIC RENAL CELL CARCINOMA
     Dosage: OPEN LABEL
     Route: 048
     Dates: start: 20090609, end: 20090802

REACTIONS (2)
  - ABDOMINAL PAIN [None]
  - PANCREATITIS [None]
